FAERS Safety Report 16259715 (Version 1)
Quarter: 2019Q2

REPORT INFORMATION
  Report Type: Spontaneous
  Country: CN (occurrence: CN)
  Receive Date: 20190501
  Receipt Date: 20190501
  Transmission Date: 20190711
  Serious: Yes (Other)
  Sender: FDA-Public Use
  Company Number: CN-INCYTE CORPORATION-2019IN004092

PATIENT

DRUGS (1)
  1. JAKAVI [Suspect]
     Active Substance: RUXOLITINIB
     Indication: PRODUCT USED FOR UNKNOWN INDICATION
     Dosage: UNK UNK, QD
     Route: 048
     Dates: start: 20180609

REACTIONS (6)
  - Nasopharyngitis [Unknown]
  - Gingival swelling [Unknown]
  - Platelet count abnormal [Unknown]
  - Decreased immune responsiveness [Unknown]
  - Gingival pain [Unknown]
  - Fatigue [Unknown]
